FAERS Safety Report 4995863-5 (Version None)
Quarter: 2006Q2

REPORT INFORMATION
  Report Type: 
  Country: None (occurrence: None)
  Receive Date: 20060504
  Receipt Date: 20060419
  Transmission Date: 20061013
  Serious: Yes (Hospitalization, Other)
  Sender: FDA-Public Use
  Company Number: 2006-DE-02019GD

PATIENT
  Age: 68 Year
  Sex: Female

DRUGS (4)
  1. PREDNISONE [Suspect]
     Indication: IMMUNOSUPPRESSANT DRUG THERAPY
     Dosage: 5 MG
  2. AZATHIOPRINE [Suspect]
     Indication: IMMUNOSUPPRESSANT DRUG THERAPY
  3. CYCLOPHOSPHAMIDE [Suspect]
     Indication: TENOSYNOVITIS
     Dosage: MONTHLY INFUSIONS OF 900 TO 1300 MG
  4. CYCLOSPORINE [Suspect]
     Indication: IMMUNOSUPPRESSANT DRUG THERAPY

REACTIONS (9)
  - FINGER DEFORMITY [None]
  - LEUKOPENIA [None]
  - MENINGEAL DISORDER [None]
  - MENINGITIS [None]
  - NUCLEAR MAGNETIC RESONANCE IMAGING BRAIN ABNORMAL [None]
  - PNEUMONIA [None]
  - RHEUMATOID ARTHRITIS [None]
  - SIMPLE PARTIAL SEIZURES [None]
  - TENOSYNOVITIS [None]
